FAERS Safety Report 4845343-2 (Version None)
Quarter: 2005Q4

REPORT INFORMATION
  Report Type: 
  Country: None (occurrence: None)
  Receive Date: 20051205
  Receipt Date: 20051129
  Transmission Date: 20060501
  Serious: Yes (Hospitalization)
  Sender: FDA-Public Use
  Company Number: JP-JPN-A20052917

PATIENT
  Age: 23 Year
  Sex: Male

DRUGS (3)
  1. ZOVIRAX [Suspect]
     Indication: VARICELLA
     Dosage: 750MG THREE TIMES PER DAY
     Route: 042
     Dates: start: 20051124
  2. CEFAZOLIN [Concomitant]
     Dates: start: 20051128
  3. LOXONIN [Concomitant]
     Route: 048
     Dates: start: 20051124

REACTIONS (2)
  - DYSURIA [None]
  - URINARY INCONTINENCE [None]
